FAERS Safety Report 9562226 (Version 1)
Quarter: 2013Q3

REPORT INFORMATION
  Report Type: Spontaneous
  Country: US (occurrence: None)
  Receive Date: 20130821
  Receipt Date: 20130821
  Transmission Date: 20140515
  Serious: Yes (Other)
  Sender: FDA-Public Use
  Company Number: 1000045260

PATIENT
  Age: 70 Year
  Sex: Female

DRUGS (3)
  1. TUDORZA PRESSAIR (ACLIDINIUM BROMIDE) (400 MICROGRAM, POWDER) [Suspect]
     Indication: INFLAMMATION
     Dosage: (400 MCG, 2 IN 1 D)
     Route: 055
     Dates: start: 201302
  2. FLOVENT (FLUTICASONE PROPIONATE) [Concomitant]
  3. NORVASC (AMLODIPINE BESILATE) [Concomitant]

REACTIONS (2)
  - Vision blurred [None]
  - Off label use [None]
